FAERS Safety Report 9565163 (Version 1)
Quarter: 2013Q3

REPORT INFORMATION
  Report Type: Spontaneous
  Country: US (occurrence: US)
  Receive Date: 20130930
  Receipt Date: 20130930
  Transmission Date: 20140515
  Serious: No
  Sender: FDA-Public Use
  Company Number: US-GLAXOSMITHKLINE-A1005568A

PATIENT
  Age: 85 Year
  Sex: Female

DRUGS (5)
  1. RELENZA [Suspect]
     Indication: INFLUENZA
     Dosage: 1APP TWICE PER DAY
     Route: 055
     Dates: start: 20121128, end: 20121129
  2. ZOCOR [Concomitant]
  3. BLOOD PRESSURE MEDICATION [Concomitant]
  4. TRICOR [Concomitant]
  5. TAMIFLU [Concomitant]

REACTIONS (1)
  - Diarrhoea [Recovered/Resolved]
